FAERS Safety Report 21439614 (Version 1)
Quarter: 2022Q4

REPORT INFORMATION
  Report Type: Spontaneous
  Country: US (occurrence: US)
  Receive Date: 20221011
  Receipt Date: 20221011
  Transmission Date: 20230113
  Serious: Yes (Other)
  Sender: FDA-Public Use
  Company Number: US-MYLANLABS-2022M1112801

PATIENT
  Age: 87 Year
  Sex: Male

DRUGS (7)
  1. TOBRAMYCIN [Suspect]
     Active Substance: TOBRAMYCIN
     Indication: Pseudomonas infection
     Dosage: UNK UNK, QH, 15 MG/ML- EYE DROPS, HOURLY
     Route: 061
  2. MOXIFLOXACIN [Suspect]
     Active Substance: MOXIFLOXACIN
     Indication: Pseudomonas infection
     Dosage: UNK, QH, HOURLY
     Route: 061
  3. TRIAMCINOLONE [Suspect]
     Active Substance: TRIAMCINOLONE
     Indication: Pseudomonas infection
     Dosage: UNK, 40 MG/ML IN 0.3 ML
     Route: 057
  4. CIPROFLOXACIN [Suspect]
     Active Substance: CIPROFLOXACIN
     Indication: Scleritis
     Dosage: 500 MILLIGRAM, BID
     Route: 048
  5. CIPROFLOXACIN [Suspect]
     Active Substance: CIPROFLOXACIN
     Indication: Pseudomonas infection
  6. CYCLOPENTOLATE [Suspect]
     Active Substance: CYCLOPENTOLATE
     Indication: Pseudomonas infection
     Dosage: UNK UNK, BID, CYCLOPENTOLATE TWICE A DAY
     Route: 061
  7. LOTEPREDNOL [Suspect]
     Active Substance: LOTEPREDNOL
     Indication: Pseudomonas infection
     Dosage: UNK, QID, FOUR TIMES A DAY
     Route: 061

REACTIONS (4)
  - Necrosis [Recovered/Resolved]
  - Necrotising scleritis [Recovered/Resolved]
  - Scleromalacia [Recovered/Resolved]
  - Toxicity to various agents [Recovered/Resolved]
